FAERS Safety Report 24880047 (Version 1)
Quarter: 2025Q1

REPORT INFORMATION
  Report Type: Spontaneous
  Country: US (occurrence: US)
  Receive Date: 20250123
  Receipt Date: 20250123
  Transmission Date: 20250409
  Serious: No
  Sender: BAUSCH AND LOMB
  Company Number: US-BAUSCHBL-2025BNL000664

PATIENT
  Age: 74 Year
  Sex: Female

DRUGS (2)
  1. MIEBO [Suspect]
     Active Substance: PERFLUOROHEXYLOCTANE
     Indication: Product used for unknown indication
     Dosage: 1 DROP IN EACH EYE 4 TIMES DAILY
     Route: 047
     Dates: start: 20250111
  2. XIIDRA [Suspect]
     Active Substance: LIFITEGRAST
     Indication: Product used for unknown indication
     Dosage: 1 DROP IN EACH EYE TWICE DAILY, MORNING AND BEDTIME
     Route: 047
     Dates: start: 20250107

REACTIONS (6)
  - Dizziness [Unknown]
  - Nervousness [Unknown]
  - Nausea [Unknown]
  - Product use complaint [Unknown]
  - Product delivery mechanism issue [Unknown]
  - Circumstance or information capable of leading to medication error [Unknown]

NARRATIVE: CASE EVENT DATE: 20250101
